FAERS Safety Report 8544632-8 (Version None)
Quarter: 2012Q3

REPORT INFORMATION
  Report Type: 
  Country: None (occurrence: None)
  Receive Date: 20120727
  Receipt Date: 20120723
  Transmission Date: 20120928
  Serious: Yes (Other)
  Sender: FDA-Public Use
  Company Number: US-PFIZER INC-2012136248

PATIENT
  Age: 85 Year
  Sex: Female

DRUGS (8)
  1. VITAMIN D [Concomitant]
     Dosage: 10000 IU, UNK
  2. PREMARIN [Suspect]
     Dosage: 0.3 ONCE A DAY
  3. VITAMIN B-12 [Concomitant]
     Dosage: 500 UG, UNK
  4. BIOTIN [Concomitant]
     Dosage: 1000 UG, UNK
  5. GLUCOSAMINE HYDROCHLORIDE/CHONDROITIN SULFATE [Concomitant]
     Dosage: 1500MG/1200MG
  6. PROCERA AVH [Concomitant]
     Indication: MEDICAL DIET
     Dosage: 1515 MG, 2/3 PER DAY
  7. VITAMIN E [Concomitant]
     Dosage: UNK
  8. FISH OIL [Concomitant]
     Dosage: 1000 MG, UNK

REACTIONS (3)
  - ARTHROPATHY [None]
  - HAIR GROWTH ABNORMAL [None]
  - HAIR COLOUR CHANGES [None]
